FAERS Safety Report 20826218 (Version 1)
Quarter: 2022Q2

REPORT INFORMATION
  Report Type: Spontaneous
  Country: PL (occurrence: None)
  Receive Date: 20220513
  Receipt Date: 20220513
  Transmission Date: 20220721
  Serious: Yes (Hospitalization)
  Sender: FDA-Public Use
  Company Number: 2022A178745

PATIENT
  Age: 68 Year
  Sex: Male

DRUGS (7)
  1. SYMBICORT [Suspect]
     Active Substance: BUDESONIDE\FORMOTEROL FUMARATE DIHYDRATE
     Indication: Asthma
     Dosage: AD HOC IN CASE OF DYSPNOEA164.5UG UNKNOWN
     Route: 055
  2. SYMBICORT [Suspect]
     Active Substance: BUDESONIDE\FORMOTEROL FUMARATE DIHYDRATE
     Indication: Asthma
     Dosage: 329.0UG UNKNOWN
     Route: 055
  3. ALVESCO [Concomitant]
     Active Substance: CICLESONIDE
     Dosage: ALVESCO 2X4 INHALATIONS
     Route: 065
  4. ALVESCO [Concomitant]
     Active Substance: CICLESONIDE
     Dosage: 160 2X2 INHALATIONS
     Route: 065
  5. FORADIL [Concomitant]
     Active Substance: FORMOTEROL FUMARATE
     Dosage: FORADIL A 12 MCG/D 2X1 INHALATION
     Route: 065
  6. VENTOLIN [Concomitant]
     Active Substance: ALBUTEROL SULFATE
     Dosage: FORADIL A 12 MCG/D 2X1 INHALATION
     Route: 065
  7. FOSTEX [Concomitant]

REACTIONS (2)
  - Asthma [Unknown]
  - Off label use [Unknown]
